FAERS Safety Report 7830917-7 (Version None)
Quarter: 2011Q4

REPORT INFORMATION
  Report Type: 
  Country: None (occurrence: None)
  Receive Date: 20111021
  Receipt Date: 20111017
  Transmission Date: 20120403
  Serious: No
  Sender: FDA-Public Use
  Company Number: US-PFIZER INC-2011249531

PATIENT
  Sex: Male

DRUGS (2)
  1. OMEPRAZOLE [Concomitant]
     Dosage: 20 MG, UNK
     Route: 048
  2. SUTENT [Suspect]
     Dosage: 50 MG, 1X/DAY, 4 WEEKS ON/2 WEEKS OFF
     Route: 048

REACTIONS (7)
  - FATIGUE [None]
  - NAUSEA [None]
  - STOMATITIS [None]
  - DECREASED APPETITE [None]
  - WEIGHT DECREASED [None]
  - PAIN [None]
  - COUGH [None]
